FAERS Safety Report 21788383 (Version 1)
Quarter: 2022Q4

REPORT INFORMATION
  Report Type: Spontaneous
  Country: DE (occurrence: DE)
  Receive Date: 20221228
  Receipt Date: 20221228
  Transmission Date: 20230112
  Serious: Yes (Hospitalization, Other)
  Sender: FDA-Public Use
  Company Number: DE-002147023-NVSC2022DE178780

PATIENT
  Age: 56 Year
  Sex: Female

DRUGS (5)
  1. METAMIZOLE [Suspect]
     Active Substance: METAMIZOLE
     Indication: Intervertebral disc protrusion
     Dosage: 2 G, QD
     Route: 065
     Dates: start: 202104
  2. METAMIZOLE [Suspect]
     Active Substance: METAMIZOLE
     Indication: Pain
  3. PREDNISOLONE [Suspect]
     Active Substance: PREDNISOLONE
     Indication: Intervertebral disc protrusion
     Dosage: 50 MG, QD
     Route: 048
     Dates: start: 202104
  4. IBUPROFEN [Suspect]
     Active Substance: IBUPROFEN
     Indication: Intervertebral disc protrusion
     Dosage: UNK
     Route: 065
     Dates: start: 202104
  5. TAPENTADOL [Suspect]
     Active Substance: TAPENTADOL
     Indication: Intervertebral disc protrusion
     Dosage: 100 MG, QD
     Route: 048
     Dates: start: 202104, end: 202104

REACTIONS (1)
  - Drug-induced liver injury [Recovered/Resolved]

NARRATIVE: CASE EVENT DATE: 20210101
